FAERS Safety Report 5479892-3 (Version None)
Quarter: 2007Q4

REPORT INFORMATION
  Report Type: 
  Country: None (occurrence: None)
  Receive Date: 20071008
  Receipt Date: 20071003
  Transmission Date: 20080405
  Serious: Yes (Hospitalization, Other)
  Sender: FDA-Public Use
  Company Number: ZW-BOEHRINGER INGELHEIM PHARMACEUTICALS, INC.-2007-BP-20100BP

PATIENT
  Sex: Male
  Weight: 5 kg

DRUGS (1)
  1. VIRAMUNE [Suspect]
     Indication: PROPHYLAXIS AGAINST HIV INFECTION
     Route: 048
     Dates: start: 20070802, end: 20070906

REACTIONS (2)
  - NEUTROPHIL COUNT DECREASED [None]
  - SEPSIS NEONATAL [None]
